FAERS Safety Report 6825799 (Version 3)
Quarter: 2014Q3

REPORT INFORMATION
  Report Type: Spontaneous
  Country: CN (occurrence: CN)
  Receive Date: 20081128
  Receipt Date: 20140819
  Transmission Date: 20150326
  Serious: Yes (Other)
  Sender: FDA-Public Use
  Company Number: CN-PFIZER INC-2008098434

PATIENT
  Age: 63 Year
  Sex: Male

DRUGS (1)
  1. CEFOPERAZONE/SULBACTAM [Suspect]
     Active Substance: CEFOPERAZONE\SULBACTAM
     Indication: STENOTROPHOMONAS INFECTION
     Dosage: 1G PER EVERY 12 HOURS
     Route: 042
     Dates: start: 20070817, end: 20070822

REACTIONS (3)
  - Platelet count decreased [Recovered/Resolved]
  - Gastrointestinal haemorrhage [Recovered/Resolved]
  - Haemoptysis [Unknown]

NARRATIVE: CASE EVENT DATE: 200708
